FAERS Safety Report 8613955-6 (Version None)
Quarter: 2012Q3

REPORT INFORMATION
  Report Type: 
  Country: None (occurrence: None)
  Receive Date: 20120823
  Receipt Date: 20120815
  Transmission Date: 20120928
  Serious: No
  Sender: FDA-Public Use
  Company Number: US-PFIZER INC-2012191855

PATIENT
  Age: 64 Year
  Sex: Female
  Weight: 120 kg

DRUGS (14)
  1. VIIBRYD [Concomitant]
     Indication: PANIC ATTACK
     Dosage: 25 MG, DAILY
  2. PRILOSEC [Concomitant]
     Dosage: 20 MG, DAILY
  3. FLORAJEN 3 [Concomitant]
     Indication: ABDOMINAL DISCOMFORT
     Dosage: UNK
  4. SPIRIVA [Concomitant]
     Indication: CHRONIC OBSTRUCTIVE PULMONARY DISEASE
     Dosage: 1 PUFF, DAILY
  5. TOPAMAX [Concomitant]
     Dosage: 600 MG, DAILY
     Route: 048
  6. VIVELLE-DOT [Concomitant]
     Indication: HYSTERECTOMY
     Dosage: UNK, 2X/WEEK
  7. DULERA [Concomitant]
     Indication: CHRONIC OBSTRUCTIVE PULMONARY DISEASE
     Dosage: 5/200 MCG, TWO TIMES A DAY AS NEEDED
  8. SODIUM PHOSPHATES [Concomitant]
     Indication: CONSTIPATION
     Dosage: UNK
  9. GLYCERIN [Concomitant]
     Indication: CONSTIPATION
     Dosage: UNK
  10. CLONAZEPAM [Concomitant]
     Indication: PANIC ATTACK
     Dosage: 0.5 MG IN MORNING AND AT 2PM AND 1 MG AT BED TIME, 3X/DAY
  11. HYDROCODONE [Concomitant]
     Indication: PAIN
     Dosage: ^10/325 MG^ EVERY 4 HOURS AS NEEDED UPTO 6 TIMES A DAY
  12. FLORAJEN 3 [Concomitant]
     Indication: HIATUS HERNIA
  13. LYRICA [Suspect]
     Indication: FIBROMYALGIA
     Dosage: 75 MG, 2X/DAY
     Dates: start: 20120718
  14. GABAPENTIN [Concomitant]
     Indication: PANIC ATTACK
     Dosage: 300 MG IN MORNING AND AT 2PM AND 600 MG AT BED TIME, 3X/DAY

REACTIONS (3)
  - MALAISE [None]
  - CONSTIPATION [None]
  - PAIN [None]
